FAERS Safety Report 15434296 (Version 5)
Quarter: 2020Q2

REPORT INFORMATION
  Report Type: Spontaneous
  Country: NL (occurrence: NL)
  Receive Date: 20180927
  Receipt Date: 20200427
  Transmission Date: 20200713
  Serious: Yes (Hospitalization, Other)
  Sender: FDA-Public Use
  Company Number: PHHY2018NL108519

PATIENT
  Age: 87 Year
  Sex: Male

DRUGS (6)
  1. SOTALOL. [Suspect]
     Active Substance: SOTALOL
     Indication: CARDIAC FAILURE
     Dosage: UNK (HIGH DOSE)
     Route: 065
  2. ALFUZOSIN [Suspect]
     Active Substance: ALFUZOSIN
     Indication: CARDIAC FAILURE
     Dosage: UNK
     Route: 065
  3. FUROSEMIDE. [Suspect]
     Active Substance: FUROSEMIDE
     Indication: CARDIAC FAILURE
     Dosage: UNK
     Route: 065
  4. TELMISARTAN. [Suspect]
     Active Substance: TELMISARTAN
     Indication: CARDIAC FAILURE
     Dosage: UNK (HIGHEST DOSE)
     Route: 065
  5. HYDROCHLOROTHIAZIDE. [Suspect]
     Active Substance: HYDROCHLOROTHIAZIDE
     Indication: CARDIAC FAILURE
     Dosage: UNK
     Route: 065
  6. COMBODART [Suspect]
     Active Substance: DUTASTERIDE\TAMSULOSIN
     Indication: CARDIAC FAILURE
     Dosage: UNK
     Route: 065

REACTIONS (10)
  - Dissociation [Recovered/Resolved]
  - Incontinence [Recovered/Resolved]
  - Petit mal epilepsy [Not Recovered/Not Resolved]
  - Daydreaming [Unknown]
  - Hypotension [Unknown]
  - Staring [Unknown]
  - Pallor [Recovered/Resolved]
  - Loss of consciousness [Recovered/Resolved]
  - Hyperhidrosis [Not Recovered/Not Resolved]
  - Mental disorder [Recovered/Resolved]
